FAERS Safety Report 4490630-3 (Version None)
Quarter: 2004Q4

REPORT INFORMATION
  Report Type: 
  Country: None (occurrence: None)
  Receive Date: 20041028
  Receipt Date: 20041013
  Transmission Date: 20050328
  Serious: Yes (Other)
  Sender: FDA-Public Use
  Company Number: S04-GER-06841-01

PATIENT
  Age: 20 Year
  Sex: Female

DRUGS (7)
  1. CIPRALEX (ESCITALOPRAM) [Suspect]
     Indication: POST-TRAUMATIC STRESS DISORDER
     Dosage: 15 MG QD PO
     Route: 048
     Dates: start: 20040803, end: 20040910
  2. CIPRALEX (ESCITALOPRAM) [Suspect]
     Indication: SCHIZOAFFECTIVE DISORDER
     Dosage: 15 MG QD PO
     Route: 048
     Dates: start: 20040803, end: 20040910
  3. CIPRALEX (ESCITALOPRAM) [Suspect]
     Indication: POST-TRAUMATIC STRESS DISORDER
     Dosage: 10 MG QD PO
     Route: 048
     Dates: start: 20040911, end: 20040917
  4. CIPRALEX (ESCITALOPRAM) [Suspect]
     Indication: SCHIZOAFFECTIVE DISORDER
     Dosage: 10 MG QD PO
     Route: 048
     Dates: start: 20040911, end: 20040917
  5. SEROQUEL (QUETIAPIEN FUMARATE) [Concomitant]
  6. NEUROCIL (LEVOMEPROMAZINE MALEATE) [Concomitant]
  7. BIVIOL [Concomitant]

REACTIONS (4)
  - BLOOD PROLACTIN INCREASED [None]
  - GALACTORRHOEA [None]
  - WEIGHT DECREASED [None]
  - WEIGHT INCREASED [None]
